FAERS Safety Report 18465276 (Version 1)
Quarter: 2020Q4

REPORT INFORMATION
  Report Type: Spontaneous
  Country: DE (occurrence: DE)
  Receive Date: 20201104
  Receipt Date: 20201104
  Transmission Date: 20210114
  Serious: Yes (Hospitalization)
  Sender: FDA-Public Use
  Company Number: DE-009507513-2011DEU001020

PATIENT
  Age: 78 Year
  Sex: Male
  Weight: 87 kg

DRUGS (9)
  1. METOPROLOL. [Concomitant]
     Active Substance: METOPROLOL
     Dosage: 47.5 MG, 1-0-1-0, TABLETS
     Route: 048
  2. LATANOPROST (+) TIMOLOL MALEATE [Concomitant]
     Dosage: 0.05/5 MG, 1-0-0-0
  3. SITAGLIPTIN PHOSPHATE [Suspect]
     Active Substance: SITAGLIPTIN PHOSPHATE
     Dosage: 100 MG, 1-0-0-0, TABLETS
     Route: 048
  4. METFORMIN [Concomitant]
     Active Substance: METFORMIN HYDROCHLORIDE
     Dosage: 1000 MG, 0.5-0-0.5-0, TABLETS
     Route: 048
  5. KREON [Concomitant]
     Active Substance: PANCRELIPASE
     Dosage: 25.000 IU, 0-1-0-0, CAPSULE
     Route: 048
  6. RIVAROXABAN [Concomitant]
     Active Substance: RIVAROXABAN
     Dosage: 20 MG, 1-0-0-0, TABLET
     Route: 048
  7. AMLODIPINE [Concomitant]
     Active Substance: AMLODIPINE BESYLATE
     Dosage: 5 MG, 1-0-0-0, TABLETS
     Route: 048
  8. RAMIPRIL. [Concomitant]
     Active Substance: RAMIPRIL
     Dosage: 5 MG, 0-0-1-0, TABLET
     Route: 048
  9. INSULIN GLARGINE [Concomitant]
     Active Substance: INSULIN GLARGINE
     Dosage: 44 IU, 0-0-0-1, AMPOULES
     Route: 058

REACTIONS (5)
  - General physical health deterioration [Unknown]
  - Abdominal pain upper [Unknown]
  - Product prescribing error [Unknown]
  - Abdominal pain [Unknown]
  - Condition aggravated [Unknown]
